FAERS Safety Report 16929427 (Version 1)
Quarter: 2019Q4

REPORT INFORMATION
  Report Type: Spontaneous
  Country: US (occurrence: US)
  Receive Date: 20191016
  Receipt Date: 20191016
  Transmission Date: 20200122
  Serious: Yes (Other)
  Sender: FDA-Public Use
  Company Number: None

PATIENT
  Age: 62 Year
  Sex: Female
  Weight: 72 kg

DRUGS (3)
  1. REFRESH CONTACTS [Suspect]
     Active Substance: CARBOXYMETHYLCELLULOSE SODIUM
     Indication: MEDICAL DEVICE SITE REACTION
     Dosage: ?          OTHER STRENGTH:GTIN;QUANTITY:2 DROP(S);?
     Route: 047
     Dates: start: 20191015, end: 20191016
  2. REFRESH CONTACTS [Suspect]
     Active Substance: CARBOXYMETHYLCELLULOSE SODIUM
     Indication: MEDICAL DEVICE SITE IRRITATION
     Dosage: ?          OTHER STRENGTH:GTIN;QUANTITY:2 DROP(S);?
     Route: 047
     Dates: start: 20191015, end: 20191016
  3. REFRESH OPTIVE GEL DROPS [Suspect]
     Active Substance: CARBOXYMETHYLCELLULOSE SODIUM\GLYCERIN

REACTIONS (4)
  - Physical product label issue [None]
  - Product formulation issue [None]
  - Instillation site discharge [None]
  - Eye discharge [None]

NARRATIVE: CASE EVENT DATE: 20191015
